FAERS Safety Report 5257346-7 (Version None)
Quarter: 2007Q1

REPORT INFORMATION
  Report Type: 
  Country: None (occurrence: None)
  Receive Date: 20070302
  Receipt Date: 20070222
  Transmission Date: 20070707
  Serious: Yes (Hospitalization)
  Sender: FDA-Public Use
  Company Number: 153186USA

PATIENT
  Age: 17 Year
  Sex: Male
  Weight: 74.8435 kg

DRUGS (2)
  1. DOXYCYCLINE HYCLATE [Suspect]
     Indication: ACNE
     Dosage: 200 MG (100 MG, 2 IN 1 D), ORAL
     Route: 048
     Dates: start: 20061030, end: 20061208
  2. BACTRIM [Suspect]
     Indication: ACNE
     Dosage: 800 MG/160 MG BID FOR 1 MO. THEN 1 Q/DAY (1 IN 1 D), ORAL
     Route: 048
     Dates: start: 20060826, end: 20061019

REACTIONS (3)
  - DEEP VEIN THROMBOSIS [None]
  - IRON DEFICIENCY ANAEMIA [None]
  - THROMBOCYTHAEMIA [None]
